FAERS Safety Report 4755458-5 (Version None)
Quarter: 2005Q3

REPORT INFORMATION
  Report Type: 
  Country: None (occurrence: None)
  Receive Date: 20050829
  Receipt Date: 20050817
  Transmission Date: 20060218
  Serious: Yes (Other)
  Sender: FDA-Public Use
  Company Number: 2005117180

PATIENT
  Sex: Female
  Weight: 108.8633 kg

DRUGS (2)
  1. LUDEN'S (MENTHOL, PECTIN) [Suspect]
     Indication: NAUSEA
     Dosage: 1-2 DROPS PRN, ORAL
     Route: 048
  2. INSULIN (INSULIN) [Concomitant]

REACTIONS (2)
  - ABORTION SPONTANEOUS [None]
  - DRUG EXPOSURE DURING PREGNANCY [None]
